FAERS Safety Report 17567678 (Version 1)
Quarter: 2020Q1

REPORT INFORMATION
  Report Type: Spontaneous
  Country: JP (occurrence: JP)
  Receive Date: 20200320
  Receipt Date: 20200320
  Transmission Date: 20200409
  Serious: Yes (Hospitalization)
  Sender: FDA-Public Use
  Company Number: JP-ASTRAZENECA-2020SE27276

PATIENT
  Age: 40 Year
  Sex: Female
  Weight: 49 kg

DRUGS (9)
  1. VIMPAT [Suspect]
     Active Substance: LACOSAMIDE
     Indication: EPILEPSY
     Route: 048
     Dates: start: 20180823, end: 20181028
  2. EXCEGRAN [Suspect]
     Active Substance: ZONISAMIDE
     Indication: EPILEPSY
     Route: 048
     Dates: start: 20180704, end: 20181028
  3. NEXIUM [Suspect]
     Active Substance: ESOMEPRAZOLE MAGNESIUM
     Indication: GASTRIC ULCER
     Dosage: DOSE AND FREQUENCY UNKNOWN
     Route: 048
     Dates: start: 20190307
  4. FERROUS CITRATE NA [Suspect]
     Active Substance: SODIUM FERROUS CITRATE
     Indication: ANAEMIA
     Route: 048
     Dates: start: 20180823, end: 20181028
  5. POLAPREZINC [Suspect]
     Active Substance: POLAPREZINC
     Indication: GASTRIC ULCER
     Route: 048
     Dates: start: 20180910, end: 20181028
  6. NEXIUM [Suspect]
     Active Substance: ESOMEPRAZOLE MAGNESIUM
     Indication: GASTRIC ULCER
     Route: 048
     Dates: start: 20180906, end: 20181028
  7. BACTRAMIN [Concomitant]
     Active Substance: SULFAMETHOXAZOLE\TRIMETHOPRIM
     Dosage: DOSE AND FREQUENCY UNKNOWN
     Route: 048
     Dates: start: 20180817, end: 20180819
  8. TEMOZOLOMIDE. [Suspect]
     Active Substance: TEMOZOLOMIDE
     Indication: BRAIN NEOPLASM
     Route: 048
     Dates: start: 20180719, end: 20180927
  9. FYCOMPA [Concomitant]
     Active Substance: PERAMPANEL
     Indication: EPILEPSY
     Route: 065
     Dates: start: 20190207

REACTIONS (1)
  - Drug eruption [Recovering/Resolving]

NARRATIVE: CASE EVENT DATE: 20181028
